FAERS Safety Report 10521612 (Version 2)
Quarter: 2014Q4

REPORT INFORMATION
  Report Type: Spontaneous
  Country: US (occurrence: None)
  Receive Date: 20141014
  Receipt Date: 20141125
  Transmission Date: 20150528
  Serious: Yes (Death, Other)
  Sender: FDA-Public Use
  Company Number: 2014-20477

PATIENT
  Age: 89 Year
  Sex: Female

DRUGS (1)
  1. EYLEA [Suspect]
     Active Substance: AFLIBERCEPT
     Indication: MACULAR DEGENERATION
     Dosage: EVERY FOUR WEEKS FOR 3 MONTHS THEN EVERY 8 WEEKS THEREAFTER, INTRAOCULAR
     Route: 031
     Dates: start: 20130419

REACTIONS (1)
  - Death [None]
